FAERS Safety Report 13775227 (Version 1)
Quarter: 2017Q3

REPORT INFORMATION
  Report Type: Spontaneous
  Country: US (occurrence: US)
  Receive Date: 20170720
  Receipt Date: 20170720
  Transmission Date: 20171127
  Serious: No
  Sender: FDA-Public Use
  Company Number: None

PATIENT
  Age: 36 Year
  Sex: Female

DRUGS (1)
  1. ENTYVIO [Suspect]
     Active Substance: VEDOLIZUMAB
     Indication: CROHN^S DISEASE
     Dosage: 300MG Q4WK IV
     Route: 042
     Dates: start: 20160901

REACTIONS (6)
  - Irritable bowel syndrome [None]
  - Maternal exposure timing unspecified [None]
  - Infusion site coldness [None]
  - Procedural headache [None]
  - Caesarean section [None]
  - Diarrhoea [None]

NARRATIVE: CASE EVENT DATE: 20170718
